FAERS Safety Report 6722498-6 (Version None)
Quarter: 2010Q2

REPORT INFORMATION
  Report Type: 
  Country: None (occurrence: None)
  Receive Date: 20100512
  Receipt Date: 20100503
  Transmission Date: 20101027
  Serious: Yes (Disabling)
  Sender: FDA-Public Use
  Company Number: EC-GENENTECH-301386

PATIENT
  Age: 38 Year
  Sex: Female
  Weight: 69.4 kg

DRUGS (2)
  1. MABTHERA [Suspect]
     Indication: RHEUMATOID ARTHRITIS
     Dosage: 1000 MG, UNK
     Route: 042
     Dates: start: 20080101, end: 20090501
  2. METHOTREXATE [Concomitant]
     Indication: RHEUMATOID ARTHRITIS
     Dosage: 5 MG, BID
     Route: 048
     Dates: start: 20080101, end: 20090501

REACTIONS (5)
  - DIPLOPIA [None]
  - DIZZINESS [None]
  - VASCULITIS [None]
  - VERTIGO [None]
  - VOMITING [None]
